FAERS Safety Report 16674670 (Version 3)
Quarter: 2019Q3

REPORT INFORMATION
  Report Type: Spontaneous
  Country: RO (occurrence: RO)
  Receive Date: 20190806
  Receipt Date: 20190830
  Transmission Date: 20191004
  Serious: No
  Sender: FDA-Public Use
  Company Number: RO-ASTRAZENECA-2019SF11168

PATIENT
  Age: 76 Year
  Sex: Male

DRUGS (4)
  1. BRILIQUE [Suspect]
     Active Substance: TICAGRELOR
     Indication: STENT PLACEMENT
     Route: 048
  2. ASA [Concomitant]
     Active Substance: ASPIRIN
     Indication: STENT PLACEMENT
  3. BRILIQUE [Suspect]
     Active Substance: TICAGRELOR
     Indication: ANGINA UNSTABLE
     Route: 048
  4. ASA [Concomitant]
     Active Substance: ASPIRIN
     Indication: ANGINA UNSTABLE

REACTIONS (1)
  - Product use issue [Unknown]
